FAERS Safety Report 12556625 (Version 1)
Quarter: 2016Q3

REPORT INFORMATION
  Report Type: Report from Study
  Country: BR (occurrence: BR)
  Receive Date: 20160714
  Receipt Date: 20160714
  Transmission Date: 20161109
  Serious: Yes (Other)
  Sender: FDA-Public Use
  Company Number: PHHY2016BR095847

PATIENT
  Sex: Male
  Weight: 103 kg

DRUGS (2)
  1. FORASEQ [Suspect]
     Active Substance: BUDESONIDE\FORMOTEROL FUMARATE
     Indication: PRODUCT USED FOR UNKNOWN INDICATION
     Dosage: UNK, BID
     Route: 055
     Dates: start: 2009
  2. CARBAMAZEPINE. [Concomitant]
     Active Substance: CARBAMAZEPINE
     Indication: PRODUCT USED FOR UNKNOWN INDICATION
     Dosage: UNK
     Route: 065

REACTIONS (5)
  - Diabetes mellitus [Unknown]
  - Hypertension [Unknown]
  - Blood cholesterol increased [Unknown]
  - Varicose vein [Unknown]
  - Varicella [Unknown]
